FAERS Safety Report 25065184 (Version 2)
Quarter: 2025Q2

REPORT INFORMATION
  Report Type: Report from Study
  Country: BR (occurrence: BR)
  Receive Date: 20250311
  Receipt Date: 20250505
  Transmission Date: 20250717
  Serious: Yes (Disabling)
  Sender: TAKEDA
  Company Number: BR-TAKEDA-2025TUS024951

PATIENT
  Sex: Male

DRUGS (3)
  1. HEMO-8R [Suspect]
     Active Substance: ANTIHEMOPHILIC FACTOR, HUMAN RECOMBINANT
     Indication: Factor VIII deficiency
     Dosage: 3000 INTERNATIONAL UNIT, QOD
     Dates: start: 2004
  2. HEMO-8R [Suspect]
     Active Substance: ANTIHEMOPHILIC FACTOR, HUMAN RECOMBINANT
     Dosage: 3000 INTERNATIONAL UNIT, QOD
     Dates: start: 2004
  3. HEMO-8R [Suspect]
     Active Substance: ANTIHEMOPHILIC FACTOR, HUMAN RECOMBINANT

REACTIONS (3)
  - Osteoarthritis [Recovered/Resolved with Sequelae]
  - Injury [Unknown]
  - Extra dose administered [Unknown]
